APPROVED DRUG PRODUCT: ACETAMINOPHEN AND CODEINE PHOSPHATE
Active Ingredient: ACETAMINOPHEN; CODEINE PHOSPHATE
Strength: 300MG;30MG
Dosage Form/Route: TABLET;ORAL
Application: A081250 | Product #001
Applicant: FOSUN PHARMA USA INC
Approved: Jul 16, 1992 | RLD: No | RS: No | Type: DISCN